FAERS Safety Report 17261353 (Version 1)
Quarter: 2020Q1

REPORT INFORMATION
  Report Type: Spontaneous
  Country: CO (occurrence: CO)
  Receive Date: 20200113
  Receipt Date: 20200113
  Transmission Date: 20200409
  Serious: Yes (Hospitalization, Other)
  Sender: FDA-Public Use
  Company Number: CO-AUROBINDO-AUR-APL-2020-002261

PATIENT
  Age: 37 Year
  Sex: Female

DRUGS (2)
  1. ABACAVIR SULFATE AND LAMIVUDINE [Suspect]
     Active Substance: ABACAVIR SULFATE\LAMIVUDINE
     Indication: HIV INFECTION
     Dosage: UNK
     Route: 065
  2. LOPINAVIR AND RITONAVIR [Suspect]
     Active Substance: LOPINAVIR\RITONAVIR
     Indication: HIV INFECTION
     Dosage: UNK
     Route: 065

REACTIONS (10)
  - Immune reconstitution inflammatory syndrome [Unknown]
  - Dermatitis bullous [Recovering/Resolving]
  - Skin lesion inflammation [Recovering/Resolving]
  - Lepromatous leprosy [Unknown]
  - Madarosis [Unknown]
  - Pyrexia [Unknown]
  - Blister [Recovering/Resolving]
  - Oedema [Unknown]
  - Paraesthesia [Unknown]
  - Skin necrosis [Recovering/Resolving]
